FAERS Safety Report 22393408 (Version 1)
Quarter: 2023Q2

REPORT INFORMATION
  Report Type: Spontaneous
  Country: US (occurrence: US)
  Receive Date: 20230601
  Receipt Date: 20230601
  Transmission Date: 20230722
  Serious: No
  Sender: FDA-Public Use
  Company Number: US-TEVA-2023-US-2890390

PATIENT
  Age: 75 Year
  Sex: Female

DRUGS (2)
  1. MUPIROCIN [Suspect]
     Active Substance: MUPIROCIN
     Indication: Pseudofolliculitis
     Route: 065
  2. MUPIROCIN [Suspect]
     Active Substance: MUPIROCIN
     Indication: Skin irritation

REACTIONS (3)
  - Fungal infection [Not Recovered/Not Resolved]
  - Acne [Not Recovered/Not Resolved]
  - Product prescribing issue [Unknown]
